FAERS Safety Report 5092208-X (Version None)
Quarter: 2006Q3

REPORT INFORMATION
  Report Type: 
  Country: None (occurrence: None)
  Receive Date: 20060824
  Receipt Date: 20060807
  Transmission Date: 20061208
  Serious: Yes (Hospitalization, Other)
  Sender: FDA-Public Use
  Company Number: USA-2006-0024701

PATIENT
  Age: 64 Year
  Sex: Female

DRUGS (4)
  1. OXYCONTIN TABLETS (OXYCODON HYDROCHLORIDE) PROLONGE-RELEASE TABLET [Suspect]
     Indication: SPINAL COMPRESSION FRACTURE
     Dosage: 40 G Q12H
     Dates: end: 20060701
  2. DIOVAN [Concomitant]
  3. LASIX [Concomitant]
  4. ACCOLATE [Concomitant]

REACTIONS (7)
  - DRUG WITHDRAWAL SYNDROME [None]
  - EYE SWELLING [None]
  - FEELING JITTERY [None]
  - MYOCARDIAL INFARCTION [None]
  - NERVOUSNESS [None]
  - RASH [None]
  - SWELLING FACE [None]
